FAERS Safety Report 18087707 (Version 8)
Quarter: 2022Q1

REPORT INFORMATION
  Report Type: Spontaneous
  Country: JP (occurrence: JP)
  Receive Date: 20200729
  Receipt Date: 20220329
  Transmission Date: 20220424
  Serious: Yes (Death, Hospitalization, Other)
  Sender: FDA-Public Use
  Company Number: JP-BRISTOL-MYERS SQUIBB COMPANY-BMS-2020-045796

PATIENT
  Age: 75 Year
  Sex: Male
  Weight: 47.5 kg

DRUGS (10)
  1. YERVOY [Suspect]
     Active Substance: IPILIMUMAB
     Indication: Gastrointestinal melanoma
     Dosage: 3 MILLIGRAM/KILOGRAM, Q3WK
     Route: 041
     Dates: start: 20200605, end: 20200717
  2. OPDIVO [Suspect]
     Active Substance: NIVOLUMAB
     Indication: Gastrointestinal melanoma
     Dosage: 80 MILLIGRAM
     Route: 041
     Dates: start: 20200221, end: 20200522
  3. OPDIVO [Suspect]
     Active Substance: NIVOLUMAB
     Dosage: 80 MILLIGRAM, Q3WK
     Route: 041
     Dates: start: 20200605, end: 20200717
  4. KETOPROFEN [Suspect]
     Active Substance: KETOPROFEN
     Indication: Pain in extremity
     Dosage: UNK
     Route: 062
     Dates: start: 20200605
  5. CAMOSTAT MESYLATE [Concomitant]
     Active Substance: CAMOSTAT MESYLATE
     Indication: Product used for unknown indication
     Dosage: UNK
     Route: 048
  6. SENNOSIDES A AND B [Concomitant]
     Active Substance: SENNOSIDES A AND B
     Indication: Product used for unknown indication
     Dosage: UNK
     Route: 065
  7. MAGNESIUM OXIDE [Concomitant]
     Active Substance: MAGNESIUM OXIDE
     Indication: Product used for unknown indication
     Dosage: UNK
     Route: 065
  8. UNSPECIFIED INGREDIENT [Concomitant]
     Active Substance: UNSPECIFIED INGREDIENT
     Indication: Product used for unknown indication
     Dosage: UNK
     Route: 065
  9. MOSAPRIDE CITRATE [Concomitant]
     Active Substance: MOSAPRIDE CITRATE
     Indication: Product used for unknown indication
     Dosage: UNK
     Route: 048
  10. NAPROXEN [Concomitant]
     Active Substance: NAPROXEN
     Indication: Product used for unknown indication
     Dosage: UNK
     Route: 048

REACTIONS (5)
  - Interstitial lung disease [Fatal]
  - Pyrexia [Recovered/Resolved]
  - Pleural effusion [Not Recovered/Not Resolved]
  - Photosensitivity reaction [Recovering/Resolving]
  - Pain in extremity [Unknown]

NARRATIVE: CASE EVENT DATE: 20200608
